FAERS Safety Report 16268134 (Version 2)
Quarter: 2019Q2

REPORT INFORMATION
  Report Type: Spontaneous
  Country: US (occurrence: US)
  Receive Date: 20190503
  Receipt Date: 20190514
  Transmission Date: 20190711
  Serious: Yes (Hospitalization)
  Sender: FDA-Public Use
  Company Number: US-009507513-1905USA000068

PATIENT
  Age: 72 Year
  Sex: Male
  Weight: 67.4 kg

DRUGS (7)
  1. CARBOPLATIN. [Suspect]
     Active Substance: CARBOPLATIN
     Dosage: 475 MILLIGRAM
     Route: 042
     Dates: start: 20180912, end: 20181023
  2. PEMETREXED DISODIUM [Suspect]
     Active Substance: PEMETREXED DISODIUM
     Indication: LUNG ADENOCARCINOMA
     Dosage: 660 MILLIGRAM
     Route: 042
     Dates: start: 20181030
  3. EPACADOSTAT [Suspect]
     Active Substance: EPACADOSTAT
     Indication: LUNG ADENOCARCINOMA
     Dosage: 200 MILLIGRAM, QD
     Route: 048
     Dates: start: 20181002, end: 20181017
  4. PEMBROLIZUMAB. [Suspect]
     Active Substance: PEMBROLIZUMAB
     Dosage: 200 MILLIGRAM
     Route: 042
     Dates: start: 20181030
  5. CARBOPLATIN. [Suspect]
     Active Substance: CARBOPLATIN
     Indication: LUNG ADENOCARCINOMA
     Dosage: 340 MILLIGRAM
     Route: 042
     Dates: start: 20181030
  6. PEMBROLIZUMAB. [Suspect]
     Active Substance: PEMBROLIZUMAB
     Indication: LUNG ADENOCARCINOMA
     Dosage: 200 MILLIGRAM
     Route: 042
     Dates: start: 20181002, end: 20181002
  7. PEMETREXED DISODIUM [Suspect]
     Active Substance: PEMETREXED DISODIUM
     Dosage: 880 MILLIGRAM
     Route: 042
     Dates: start: 20180912, end: 20181023

REACTIONS (1)
  - Febrile neutropenia [Recovered/Resolved]

NARRATIVE: CASE EVENT DATE: 20181017
